FAERS Safety Report 8044361-3 (Version None)
Quarter: 2011Q4

REPORT INFORMATION
  Report Type: 
  Country: None (occurrence: None)
  Receive Date: 20111202
  Receipt Date: 20101117
  Transmission Date: 20120403
  Serious: Yes (Other)
  Sender: FDA-Public Use
  Company Number: 2010SP060921

PATIENT
  Age: 50 Year
  Sex: Female

DRUGS (2)
  1. NUVARING [Suspect]
     Indication: PRODUCT USED FOR UNKNOWN INDICATION
     Dosage: 1 DF; QD; VAG
     Route: 067
  2. RITALIN [Concomitant]

REACTIONS (2)
  - HYPERTENSION [None]
  - HEADACHE [None]
